FAERS Safety Report 8183138-5 (Version None)
Quarter: 2012Q1

REPORT INFORMATION
  Report Type: 
  Country: None (occurrence: None)
  Receive Date: 20120305
  Receipt Date: 20120223
  Transmission Date: 20120608
  Serious: Yes (Other)
  Sender: FDA-Public Use
  Company Number: US-GENZYME-FABR-1002308

PATIENT

DRUGS (15)
  1. FABRAZYME [Suspect]
     Indication: FABRY'S DISEASE
     Dosage: 35 MG, Q2W
     Route: 042
  2. AMLODIPINE [Concomitant]
     Indication: HYPERTENSION
     Dosage: 10 MG, QD
     Route: 065
     Dates: start: 20120116
  3. FABRAZYME [Suspect]
     Dosage: 70 MG, Q2W
     Route: 042
     Dates: start: 20030626
  4. FLONASE [Concomitant]
     Indication: MULTIPLE ALLERGIES
     Dosage: 0.05 MG, QD
     Route: 045
     Dates: start: 20111123
  5. SENSIPAR [Concomitant]
     Indication: NEPHROPATHY
     Dosage: 90 MG, QD
     Route: 065
     Dates: start: 20100708
  6. PREDNISOLONE [Concomitant]
     Indication: RENAL TRANSPLANT
     Dosage: 5 MG, QD
     Route: 065
     Dates: start: 20100708
  7. ASPIRIN [Concomitant]
     Indication: PRODUCT USED FOR UNKNOWN INDICATION
     Dosage: 325 MG, QD
     Route: 065
     Dates: start: 20100708
  8. CYMBALTA [Concomitant]
     Indication: PAIN
     Dosage: 30 MG, Q12HR
     Route: 065
     Dates: start: 20110527
  9. RENVELA [Concomitant]
     Indication: NEPHROPATHY
     Dosage: 800 MG, QDX3
     Route: 066
     Dates: start: 20110527
  10. DOCUSATE SODIUM [Concomitant]
     Indication: CONSTIPATION
     Dosage: 100 MG, QD
     Route: 065
     Dates: start: 20100713
  11. CALCITRIOL [Concomitant]
     Indication: NEPHROPATHY
     Dosage: 0.5 MCG, 3X/W
     Route: 042
     Dates: start: 20100713
  12. DAILY-VITE [Concomitant]
     Indication: PROPHYLAXIS
     Dosage: UNK
     Route: 065
     Dates: start: 20091228
  13. DIOVAN [Concomitant]
     Indication: HYPERTENSION
     Dosage: 40 MG, QD
     Route: 065
     Dates: start: 20110527
  14. PRAMIPEXOLE DIHYCHLLORIDE [Concomitant]
     Indication: RESTLESS LEGS SYNDROME
     Dosage: UNK
     Route: 065
     Dates: start: 20110203
  15. PROCRIT [Concomitant]
     Indication: RENAL TRANSPLANT
     Dosage: 1200 U, 3X/W
     Route: 042
     Dates: start: 20091228

REACTIONS (3)
  - TRANSIENT ACANTHOLYTIC DERMATOSIS [None]
  - EAR INFECTION FUNGAL [None]
  - BASAL CELL CARCINOMA [None]
